FAERS Safety Report 11633785 (Version 6)
Quarter: 2016Q4

REPORT INFORMATION
  Report Type: Report from Study
  Country: PL (occurrence: PL)
  Receive Date: 20151015
  Receipt Date: 20161102
  Transmission Date: 20170206
  Serious: Yes (Hospitalization, Other)
  Sender: FDA-Public Use
  Company Number: PL-GILEAD-2015-0176434

PATIENT
  Age: 65 Year
  Sex: Male
  Weight: 88 kg

DRUGS (8)
  1. ATORIS [Concomitant]
     Active Substance: ATORVASTATIN CALCIUM
     Dosage: UNK
     Dates: start: 2006
  2. IDELALISIB [Suspect]
     Active Substance: IDELALISIB
     Indication: CHRONIC LYMPHOCYTIC LEUKAEMIA
     Dosage: 150 MG, BID
     Route: 048
     Dates: start: 20130806, end: 20150828
  3. BENDAMUSTINE [Suspect]
     Active Substance: BENDAMUSTINE
     Indication: CHRONIC LYMPHOCYTIC LEUKAEMIA
     Dosage: 200 MG, CYCLICAL
     Route: 042
     Dates: start: 20151224
  4. POLPRAZOL                          /00661201/ [Concomitant]
     Dosage: UNK
     Dates: start: 2013
  5. RITUXIMAB [Suspect]
     Active Substance: RITUXIMAB
     Indication: CHRONIC LYMPHOCYTIC LEUKAEMIA
     Dosage: 750 MG, CYCLICAL
     Route: 042
     Dates: start: 20151223
  6. NEDAL [Concomitant]
     Dosage: UNK
     Dates: start: 2006
  7. POLOCARD [Concomitant]
     Active Substance: ASPIRIN
     Dosage: UNK
     Dates: start: 2006
  8. TRITACE [Concomitant]
     Active Substance: RAMIPRIL
     Dosage: UNK
     Dates: start: 2006

REACTIONS (4)
  - Abdominal hernia [Recovered/Resolved]
  - Abdominal pain [Recovered/Resolved with Sequelae]
  - Cholelithiasis [Recovered/Resolved]
  - Biliary fistula [Recovered/Resolved]

NARRATIVE: CASE EVENT DATE: 20150929
